FAERS Safety Report 16215622 (Version 2)
Quarter: 2019Q2

REPORT INFORMATION
  Report Type: Spontaneous
  Country: DE (occurrence: DE)
  Receive Date: 20190419
  Receipt Date: 20190520
  Transmission Date: 20190711
  Serious: Yes (Death, Life-Threatening, Hospitalization, Other)
  Sender: FDA-Public Use
  Company Number: DE-009507513-1904DEU002975

PATIENT
  Age: 71 Year
  Sex: Female
  Weight: 51 kg

DRUGS (15)
  1. ALENDRON HEXAL [Concomitant]
     Dosage: 1 TABLET ONCE PER WEEK
     Route: 048
  2. DEKRISTOL [Concomitant]
     Active Substance: CHOLECALCIFEROL
     Dosage: CONCENTRATION AND DOSE: 1000 IE ONCE DAILY
     Route: 048
  3. MOVICOL [Concomitant]
     Active Substance: POLYETHYLENE GLYCOL 3350\POTASSIUM CHLORIDE\SODIUM BICARBONATE\SODIUM CHLORIDE
     Dosage: AROMA FREE, PACK, 1 PACK TWICE DAILY
  4. PANTOPRAZOL HEXAL [Concomitant]
     Active Substance: PANTOPRAZOLE
     Dosage: 1 TABLET ONCE DAILY
  5. EFFENTORA [Concomitant]
     Active Substance: FENTANYL CITRATE
     Dosage: (CONCENTRATION: 200 MIKROGRAMM BUCCALTABLETTEN) 200 MICROGRAM AS NEEDED.
     Route: 048
  6. PIPERACILLIN AND TAZOBACTAM [Concomitant]
     Active Substance: PIPERACILLIN SODIUM\TAZOBACTAM SODIUM
     Dosage: 1 DOSAGE FORM, TID
  7. HALDOL [Concomitant]
     Active Substance: HALOPERIDOL
     Dosage: FORMULATION: SOLUTION FOR INTAKE, DROPS (CONCENTRATION: 2MG/ML) 5 DROPS TRICE DAILY
  8. KEYTRUDA [Suspect]
     Active Substance: PEMBROLIZUMAB
     Indication: METASTASES TO BONE
     Dosage: 200 MILLIGRAM (INFUSION), Q3W
     Dates: start: 20190312, end: 20190312
  9. FENTANYL JANSSEN [Concomitant]
     Active Substance: FENTANYL
     Dosage: 0.05MG/H, EVERY THIRD DAY
  10. DUROGESIC [Concomitant]
     Active Substance: FENTANYL
     Dosage: CONCENTRATION: 50?G/H
  11. NOVAMINSULFON [Concomitant]
     Active Substance: METAMIZOLE
     Dosage: FORMULATION: DROPS 40 DROPS 4 TIMES DAILY
  12. ONDANSETRON RATIOPHARM [Concomitant]
     Dosage: 1 TABLET TWICE DAILY
  13. PREDNISOLUT [Concomitant]
     Active Substance: PREDNISOLONE
     Dosage: 21 HYDROGENSUCCINAT 50MG/2ML, 1 ONCE DAILY
  14. KEYTRUDA [Suspect]
     Active Substance: PEMBROLIZUMAB
     Indication: NON-SMALL CELL LUNG CANCER METASTATIC
     Dosage: 200 MILLIGRAM (INFUSION), Q3W
     Dates: start: 20190219
  15. VOMEX A [Concomitant]
     Active Substance: DIMENHYDRINATE
     Dosage: 1 TRICE DAILY

REACTIONS (3)
  - Pain [Unknown]
  - Cardiovascular insufficiency [Unknown]
  - Toxic epidermal necrolysis [Fatal]

NARRATIVE: CASE EVENT DATE: 20190226
